FAERS Safety Report 9677148 (Version 1)
Quarter: 2013Q4

REPORT INFORMATION
  Report Type: Spontaneous
  Country: US (occurrence: US)
  Receive Date: 20131108
  Receipt Date: 20131108
  Transmission Date: 20140711
  Serious: Yes (Hospitalization)
  Sender: FDA-Public Use
  Company Number: US-BRISTOL-MYERS SQUIBB COMPANY-19681634

PATIENT
  Age: 85 Year
  Sex: Male
  Weight: 62.3 kg

DRUGS (10)
  1. ELIQUIS [Suspect]
     Route: 048
  2. ASPIRIN [Concomitant]
  3. ATENOLOL [Concomitant]
  4. DOCUSATE [Concomitant]
  5. FLONASE [Concomitant]
  6. LORATADINE [Concomitant]
  7. LORAZEPAM [Concomitant]
  8. METOCLOPRAMIDE [Concomitant]
  9. OMEPRAZOLE [Concomitant]
  10. PRAVASTATIN SODIUM [Concomitant]

REACTIONS (2)
  - Dysphagia [Unknown]
  - Circumstance or information capable of leading to medication error [Unknown]
